FAERS Safety Report 6411105-8 (Version None)
Quarter: 2009Q4

REPORT INFORMATION
  Report Type: 
  Country: None (occurrence: None)
  Receive Date: 20091014
  Receipt Date: 20091001
  Transmission Date: 20100525
  Serious: Yes (Death)
  Sender: FDA-Public Use
  Company Number: THYM-1001237

PATIENT
  Age: 28 Year
  Sex: Male
  Weight: 55 kg

DRUGS (6)
  1. THYMOGLOBULIN [Suspect]
     Indication: ACUTE GRAFT VERSUS HOST DISEASE
     Dosage: 0.5 MG/KG, ONCE, INTRAVENOUS; 2 MG/KG, ONCE, INTRAVENOUS; 1 MG/KG, QD, INTRAVENOUS
     Route: 042
     Dates: start: 20090427, end: 20090427
  2. THYMOGLOBULIN [Suspect]
     Indication: STEM CELL TRANSPLANT
     Dosage: 0.5 MG/KG, ONCE, INTRAVENOUS; 2 MG/KG, ONCE, INTRAVENOUS; 1 MG/KG, QD, INTRAVENOUS
     Route: 042
     Dates: start: 20090427, end: 20090427
  3. THYMOGLOBULIN [Suspect]
     Indication: ACUTE GRAFT VERSUS HOST DISEASE
     Dosage: 0.5 MG/KG, ONCE, INTRAVENOUS; 2 MG/KG, ONCE, INTRAVENOUS; 1 MG/KG, QD, INTRAVENOUS
     Route: 042
     Dates: start: 20090521, end: 20090521
  4. THYMOGLOBULIN [Suspect]
     Indication: STEM CELL TRANSPLANT
     Dosage: 0.5 MG/KG, ONCE, INTRAVENOUS; 2 MG/KG, ONCE, INTRAVENOUS; 1 MG/KG, QD, INTRAVENOUS
     Route: 042
     Dates: start: 20090521, end: 20090521
  5. THYMOGLOBULIN [Suspect]
     Indication: ACUTE GRAFT VERSUS HOST DISEASE
     Dosage: 0.5 MG/KG, ONCE, INTRAVENOUS; 2 MG/KG, ONCE, INTRAVENOUS; 1 MG/KG, QD, INTRAVENOUS
     Route: 042
     Dates: start: 20090621, end: 20090624
  6. THYMOGLOBULIN [Suspect]
     Indication: STEM CELL TRANSPLANT
     Dosage: 0.5 MG/KG, ONCE, INTRAVENOUS; 2 MG/KG, ONCE, INTRAVENOUS; 1 MG/KG, QD, INTRAVENOUS
     Route: 042
     Dates: start: 20090621, end: 20090624

REACTIONS (1)
  - DISEASE PROGRESSION [None]
